FAERS Safety Report 5523550-3 (Version None)
Quarter: 2007Q4

REPORT INFORMATION
  Report Type: 
  Country: None (occurrence: None)
  Receive Date: 20071119
  Receipt Date: 20071119
  Transmission Date: 20080405
  Serious: No
  Sender: FDA-Public Use
  Company Number: None

PATIENT
  Age: 55 Year
  Sex: Male
  Weight: 81.6475 kg

DRUGS (3)
  1. CHANTIX [Suspect]
     Indication: SMOKING CESSATION THERAPY
     Dosage: 2 X DAILY PO
     Route: 048
     Dates: start: 20070731, end: 20070806
  2. CHANTIX [Suspect]
     Indication: SMOKING CESSATION THERAPY
     Dosage: 2X DAILY PO
     Route: 048
     Dates: start: 20070807, end: 20070828
  3. XANAX [Concomitant]

REACTIONS (12)
  - ABDOMINAL DISCOMFORT [None]
  - BURNING SENSATION [None]
  - ERECTILE DYSFUNCTION [None]
  - HYPOAESTHESIA [None]
  - HYPOAESTHESIA FACIAL [None]
  - MUSCULOSKELETAL PAIN [None]
  - MYALGIA [None]
  - NAUSEA [None]
  - PANIC ATTACK [None]
  - PARAESTHESIA [None]
  - SEMEN VOLUME DECREASED [None]
  - VISION BLURRED [None]
